FAERS Safety Report 20906500 (Version 2)
Quarter: 2022Q2

REPORT INFORMATION
  Report Type: Spontaneous
  Country: US (occurrence: US)
  Receive Date: 20220602
  Receipt Date: 20220615
  Transmission Date: 20220721
  Serious: No
  Sender: FDA-Public Use
  Company Number: US-LUPIN PHARMACEUTICALS INC.-2022-07885

PATIENT
  Sex: Female
  Weight: 71.2 kg

DRUGS (1)
  1. AMLODIPINE [Suspect]
     Active Substance: AMLODIPINE BESYLATE
     Indication: Hypertension
     Dosage: 10 MG, QD,  TAKING ONE TIME IN DAY, EVERY MORNING
     Route: 048

REACTIONS (3)
  - Periodontitis [Unknown]
  - Gingival swelling [Unknown]
  - Mouth swelling [Unknown]
